FAERS Safety Report 15468935 (Version 2)
Quarter: 2018Q4

REPORT INFORMATION
  Report Type: Spontaneous
  Country: US (occurrence: US)
  Receive Date: 20181005
  Receipt Date: 20181023
  Transmission Date: 20190205
  Serious: Yes (Other)
  Sender: FDA-Public Use
  Company Number: US-COVIS PHARMA B.V.-2018COV03799

PATIENT
  Sex: Female
  Weight: 68.03 kg

DRUGS (5)
  1. TUDORZA PRESSAIR [Suspect]
     Active Substance: ACLIDINIUM BROMIDE
     Indication: CHRONIC OBSTRUCTIVE PULMONARY DISEASE
     Dosage: 400 ?G, 2X/DAY MORNING AND NIGHT
     Route: 055
  2. OMEPRAZOLE MAGNESIUM. [Suspect]
     Active Substance: OMEPRAZOLE MAGNESIUM
     Indication: GASTROOESOPHAGEAL REFLUX DISEASE
     Dosage: 20 MG IN THE MORNING
     Route: 048
  3. LOSARTAN. [Concomitant]
     Active Substance: LOSARTAN
     Route: 048
  4. SIMVASTATIN. [Concomitant]
     Active Substance: SIMVASTATIN
     Route: 048
  5. LIALDA [Concomitant]
     Active Substance: MESALAMINE
     Dosage: 2 DOSAGE UNITS, 1X/DAY
     Route: 048
     Dates: start: 2008

REACTIONS (7)
  - Chronic obstructive pulmonary disease [Unknown]
  - Mitral valve prolapse [Unknown]
  - Regurgitation [Unknown]
  - Product dose omission [Unknown]
  - Colitis ulcerative [Unknown]
  - Visual impairment [Unknown]
  - Unevaluable event [Unknown]
